FAERS Safety Report 8256664-8 (Version None)
Quarter: 2012Q1

REPORT INFORMATION
  Report Type: 
  Country: None (occurrence: None)
  Receive Date: 20120322
  Receipt Date: 20120214
  Transmission Date: 20120608
  Serious: Yes (Death, Hospitalization)
  Sender: FDA-Public Use
  Company Number: UTC-015590

PATIENT
  Age: 73 Year
  Sex: Female
  Weight: 122.7 kg

DRUGS (6)
  1. ASPIRIN [Concomitant]
  2. TYVASO [Suspect]
     Indication: PULMONARY ARTERIAL HYPERTENSION
     Dosage: 18 TO 54 MICROGRAMS (4 IN 1 D), INHALATION
     Route: 055
     Dates: start: 20100915
  3. DIGOXIN [Concomitant]
  4. DIURETICS (DIURETICS) [Concomitant]
  5. CELEXA [Concomitant]
  6. DILTIAZEM [Concomitant]

REACTIONS (1)
  - PULMONARY HYPERTENSION [None]
